FAERS Safety Report 17421196 (Version 2)
Quarter: 2020Q1

REPORT INFORMATION
  Report Type: Spontaneous
  Country: AR (occurrence: AR)
  Receive Date: 20200214
  Receipt Date: 20200221
  Transmission Date: 20200409
  Serious: Yes (Death, Hospitalization, Other)
  Sender: FDA-Public Use
  Company Number: NVSC2020AR040595

PATIENT
  Sex: Female

DRUGS (2)
  1. EXFORGE [Suspect]
     Active Substance: AMLODIPINE BESYLATE\VALSARTAN
     Indication: HYPERTENSION
     Dosage: 1 DF, QD
     Route: 065
  2. GLUCOPHAGE [Concomitant]
     Active Substance: METFORMIN HYDROCHLORIDE
     Indication: PRODUCT USED FOR UNKNOWN INDICATION
     Dosage: 850 MG
     Route: 065

REACTIONS (9)
  - Brain neoplasm [Unknown]
  - Sitting disability [Unknown]
  - Myocardial infarction [Fatal]
  - Blindness [Unknown]
  - Paralysis [Unknown]
  - Gait disturbance [Unknown]
  - Dysstasia [Unknown]
  - Pain [Unknown]
  - Wrong technique in product usage process [Unknown]
